FAERS Safety Report 10241975 (Version 1)
Quarter: 2014Q2

REPORT INFORMATION
  Report Type: Spontaneous
  Country: US (occurrence: None)
  Receive Date: 20140613
  Receipt Date: 20140613
  Transmission Date: 20141212
  Serious: Yes (Hospitalization)
  Sender: FDA-Public Use
  Company Number: KV201400113

PATIENT
  Age: 37 Year
  Sex: Female

DRUGS (3)
  1. PRENATAL VITAMINS /02014401/ (ASCORBIC ACID, CALCIUM PANTOTHENATE, CYANOCOBALAMIN, ERGOCALCIFEROL, NICOTINAMIDE, PYRIDOXINE HYDROCHLORIDE, RETINOL PALMITATE, RIBOFLAVIN, THIAMINE MONONITRATE) [Concomitant]
  2. ASPIRIN (ACETYLSALICYLIC ACID) [Concomitant]
  3. MAKENA (HYDROXYPROGESTERONE CAPROATE 250 MG/ML) INJECTION, 250MG/ML [Suspect]
     Indication: PREMATURE DELIVERY
     Route: 030
     Dates: start: 201404

REACTIONS (4)
  - Amniotic cavity infection [None]
  - Premature labour [None]
  - Stillbirth [None]
  - Exposure during pregnancy [None]
